FAERS Safety Report 15982368 (Version 1)
Quarter: 2019Q1

REPORT INFORMATION
  Report Type: Spontaneous
  Country: US (occurrence: US)
  Receive Date: 20190219
  Receipt Date: 20190219
  Transmission Date: 20190418
  Serious: No
  Sender: FDA-Public Use
  Company Number: US-BAYER-2019-035762

PATIENT
  Age: 57 Year
  Sex: Male
  Weight: 93 kg

DRUGS (1)
  1. MIRALAX [Suspect]
     Active Substance: POLYETHYLENE GLYCOL 3350
     Dosage: UNK(HALF OF 17G DISSOLVED IN BEVERAGE DOSE)
     Route: 048
     Dates: start: 20190211

REACTIONS (2)
  - Incorrect dose administered [None]
  - Product use issue [Unknown]
